FAERS Safety Report 7190247-6 (Version None)
Quarter: 2010Q4

REPORT INFORMATION
  Report Type: 
  Country: None (occurrence: None)
  Receive Date: 20101223
  Receipt Date: 20101208
  Transmission Date: 20110411
  Serious: Yes (Other)
  Sender: FDA-Public Use
  Company Number: PHHY2010JP82046

PATIENT
  Age: 2 Year
  Sex: Male

DRUGS (1)
  1. ZADITEN [Suspect]
     Dosage: UNK
     Route: 048
     Dates: start: 20101125, end: 20101126

REACTIONS (1)
  - CONVULSION [None]
